FAERS Safety Report 24097125 (Version 1)
Quarter: 2024Q3

REPORT INFORMATION
  Report Type: Spontaneous
  Country: US (occurrence: None)
  Receive Date: 20240716
  Receipt Date: 20240716
  Transmission Date: 20241017
  Serious: Yes (Hospitalization)
  Sender: Public
  Company Number: None

PATIENT
  Sex: Male

DRUGS (3)
  1. DROXIDOPA [Suspect]
     Active Substance: DROXIDOPA
     Indication: Orthostatic hypotension
     Dosage: FREQUENCY : 3 TIMES A DAY;?
     Route: 048
     Dates: start: 202307
  2. DROXIDOPA [Suspect]
     Active Substance: DROXIDOPA
     Indication: Cardiac failure congestive
  3. DROXIDOPA [Suspect]
     Active Substance: DROXIDOPA
     Indication: Left ventricular failure

REACTIONS (1)
  - Vomiting [None]
